FAERS Safety Report 9942613 (Version 1)
Quarter: 2014Q1

REPORT INFORMATION
  Report Type: Spontaneous
  Country: US (occurrence: US)
  Receive Date: 20140303
  Receipt Date: 20140303
  Transmission Date: 20141002
  Serious: No
  Sender: FDA-Public Use
  Company Number: US-ABBVIE-13P-163-1044394-00

PATIENT
  Age: 52 Year
  Sex: Male
  Weight: 63.56 kg

DRUGS (1)
  1. HUMIRA [Suspect]
     Indication: CROHN^S DISEASE
     Dates: start: 20120716

REACTIONS (3)
  - Injury associated with device [Recovered/Resolved]
  - Wrong patient received medication [Recovered/Resolved]
  - Needle issue [Unknown]
